FAERS Safety Report 9335378 (Version 1)
Quarter: 2013Q2

REPORT INFORMATION
  Report Type: Report from Study
  Country: PH (occurrence: PH)
  Receive Date: 20130606
  Receipt Date: 20130606
  Transmission Date: 20140414
  Serious: Yes (Other)
  Sender: FDA-Public Use
  Company Number: PHHY2012PH128565

PATIENT
  Age: 63 Year
  Sex: Female

DRUGS (4)
  1. TASIGNA [Suspect]
     Indication: CHRONIC MYELOID LEUKAEMIA
  2. TASIGNA [Suspect]
  3. METFORMIN [Concomitant]
     Dosage: 500 MG PRE BREAKFAST
  4. FORTIFER FA [Concomitant]

REACTIONS (3)
  - Myelofibrosis [Unknown]
  - Bone marrow failure [Unknown]
  - Hypersensitivity [Unknown]
